FAERS Safety Report 5234251-3 (Version None)
Quarter: 2007Q1

REPORT INFORMATION
  Report Type: 
  Country: None (occurrence: None)
  Receive Date: 20070207
  Receipt Date: 20070124
  Transmission Date: 20070707
  Serious: Yes (Hospitalization)
  Sender: FDA-Public Use
  Company Number: 2006BI017498

PATIENT
  Age: 53 Year
  Sex: Female

DRUGS (1)
  1. NATALIZUMAB [Suspect]
     Indication: MULTIPLE SCLEROSIS
     Dosage: 30 MG;QM;IV
     Route: 042
     Dates: start: 20061003

REACTIONS (4)
  - ASTHENIA [None]
  - FALL [None]
  - FRACTURED SACRUM [None]
  - MULTIPLE SCLEROSIS [None]
